FAERS Safety Report 4817943-7 (Version None)
Quarter: 2005Q4

REPORT INFORMATION
  Report Type: 
  Country: None (occurrence: None)
  Receive Date: 20051102
  Receipt Date: 20050913
  Transmission Date: 20060501
  Serious: Yes (Death)
  Sender: FDA-Public Use
  Company Number: US-BRISTOL-MYERS SQUIBB COMPANY-13108733

PATIENT
  Age: 47 Year
  Sex: Male

DRUGS (2)
  1. PARAPLATIN [Suspect]
     Indication: NEOPLASM MALIGNANT
     Route: 042
     Dates: start: 20050816, end: 20050816
  2. PACLITAXEL [Concomitant]
     Indication: NEOPLASM MALIGNANT
     Route: 042
     Dates: start: 20050816, end: 20050816

REACTIONS (2)
  - EMBOLISM [None]
  - MALIGNANT NEOPLASM PROGRESSION [None]
